FAERS Safety Report 6122131-0 (Version None)
Quarter: 2009Q1

REPORT INFORMATION
  Report Type: 
  Country: None (occurrence: None)
  Receive Date: 20090318
  Receipt Date: 20090310
  Transmission Date: 20090719
  Serious: Yes (Life-Threatening)
  Sender: FDA-Public Use
  Company Number: JP-JNJFOC-20090304168

PATIENT
  Sex: Male

DRUGS (14)
  1. CRAVIT [Suspect]
     Indication: PNEUMONIA
     Route: 048
  2. UNASYN [Suspect]
     Indication: PNEUMONIA
     Route: 042
  3. ISOCOTIN [Concomitant]
     Indication: TUBERCULOUS PLEURISY
     Route: 065
  4. EBUTOL [Concomitant]
     Indication: TUBERCULOUS PLEURISY
     Route: 065
  5. RIFAMPICIN [Concomitant]
     Indication: TUBERCULOUS PLEURISY
     Route: 065
  6. URSO 250 [Concomitant]
     Indication: HEPATIC FUNCTION ABNORMAL
     Route: 065
  7. MONILAC [Concomitant]
     Indication: HEPATIC FUNCTION ABNORMAL
     Route: 065
  8. MEILAX [Concomitant]
     Indication: DEPRESSION
     Route: 065
  9. LUVOX [Concomitant]
     Indication: DEPRESSION
     Route: 065
  10. LASIX [Concomitant]
     Indication: CARDIAC FAILURE CHRONIC
     Route: 065
  11. LAFUTIDINE [Concomitant]
     Indication: GASTROINTESTINAL DISORDER
     Route: 065
  12. GASMOTIN [Concomitant]
     Indication: GASTROINTESTINAL DISORDER
     Route: 065
  13. BIOFERMIN [Concomitant]
     Indication: GASTROINTESTINAL DISORDER
     Route: 065
  14. MYSLEE [Concomitant]
     Indication: INSOMNIA
     Route: 065

REACTIONS (2)
  - DEPRESSED LEVEL OF CONSCIOUSNESS [None]
  - INTERSTITIAL LUNG DISEASE [None]
